FAERS Safety Report 5998819-9 (Version None)
Quarter: 2008Q4

REPORT INFORMATION
  Report Type: 
  Country: None (occurrence: None)
  Receive Date: 20081213
  Receipt Date: 20080724
  Transmission Date: 20090506
  Serious: No
  Sender: FDA-Public Use
  Company Number: US-AMGEN-KDL296985

PATIENT
  Sex: Female

DRUGS (2)
  1. ENBREL [Suspect]
     Indication: RHEUMATOID ARTHRITIS
  2. METHOTREXATE [Concomitant]

REACTIONS (6)
  - DIZZINESS [None]
  - FALL [None]
  - LIGAMENT RUPTURE [None]
  - SKIN LACERATION [None]
  - UPPER LIMB FRACTURE [None]
  - URINARY INCONTINENCE [None]
